FAERS Safety Report 26182859 (Version 1)
Quarter: 2025Q4

REPORT INFORMATION
  Report Type: Spontaneous
  Country: AU (occurrence: AU)
  Receive Date: 20251221
  Receipt Date: 20251221
  Transmission Date: 20260119
  Serious: Yes (Other)
  Sender: ACCORD
  Company Number: None

PATIENT
  Age: 33 Year
  Sex: Female

DRUGS (3)
  1. TACROLIMUS [Suspect]
     Active Substance: TACROLIMUS
     Indication: Product used for unknown indication
  2. MYCOPHENOLATE MOFETIL [Concomitant]
     Active Substance: MYCOPHENOLATE MOFETIL
  3. PREDNISOLONE [Concomitant]
     Active Substance: PREDNISOLONE

REACTIONS (11)
  - Cystoid macular oedema [Unknown]
  - Cytomegalovirus colitis [Unknown]
  - Ocular hypertension [Unknown]
  - Retinal degeneration [Unknown]
  - Retinal haemorrhage [Unknown]
  - Retinal vasculitis [Unknown]
  - Dengue viraemia [Unknown]
  - Infection-induced seroconversion [Unknown]
  - Pseudopapilloedema [Unknown]
  - Visual acuity reduced [Unknown]
  - Visual field defect [Unknown]
